FAERS Safety Report 20050037 (Version 1)
Quarter: 2021Q4

REPORT INFORMATION
  Report Type: Spontaneous
  Country: US (occurrence: None)
  Receive Date: 20211109
  Receipt Date: 20211109
  Transmission Date: 20220303
  Serious: Yes (Life-Threatening, Other)
  Sender: FDA-Public Use
  Company Number: None

PATIENT
  Age: 36 Year
  Sex: Female
  Weight: 84.15 kg

DRUGS (12)
  1. SULFAMETHOXAZOLE\TRIMETHOPRIM [Suspect]
     Active Substance: SULFAMETHOXAZOLE\TRIMETHOPRIM
     Indication: Cellulitis
     Dosage: OTHER QUANTITY : 1 TABLET(S);?FREQUENCY : EVERY 12 HOURS;?
     Route: 048
     Dates: start: 20211105, end: 20211105
  2. CEPHALEXIN [Suspect]
     Active Substance: CEPHALEXIN
  3. CLINDAMYCIN [Suspect]
     Active Substance: CLINDAMYCIN
  4. BENADRYL [Suspect]
     Active Substance: DIPHENHYDRAMINE HYDROCHLORIDE
  5. SULFASALAZINE [Concomitant]
     Active Substance: SULFASALAZINE
  6. URSODIOL 500MG [Concomitant]
  7. FOLIC ACID [Concomitant]
     Active Substance: FOLIC ACID
  8. FLUTICASONE PROPIONATE [Concomitant]
     Active Substance: FLUTICASONE PROPIONATE
  9. ALBUTEROL SULFATE [Concomitant]
     Active Substance: ALBUTEROL SULFATE
  10. FERROUS GLUCONATE [Concomitant]
     Active Substance: FERROUS GLUCONATE
  11. TAB-A-VITE [Concomitant]
  12. VITAMIN D3 [Concomitant]
     Active Substance: CHOLECALCIFEROL

REACTIONS (13)
  - Headache [None]
  - Eye pain [None]
  - Chills [None]
  - Syncope [None]
  - Heart rate irregular [None]
  - Heart rate increased [None]
  - Nausea [None]
  - Vomiting [None]
  - Diarrhoea [None]
  - Fatigue [None]
  - Asthenia [None]
  - Arthralgia [None]
  - Dyspepsia [None]

NARRATIVE: CASE EVENT DATE: 20211105
